FAERS Safety Report 6401966-0 (Version None)
Quarter: 2009Q4

REPORT INFORMATION
  Report Type: 
  Country: None (occurrence: None)
  Receive Date: 20091015
  Receipt Date: 20091012
  Transmission Date: 20100525
  Serious: Yes (Hospitalization)
  Sender: FDA-Public Use
  Company Number: B0581068B

PATIENT
  Sex: Female
  Weight: 86 kg

DRUGS (4)
  1. LAPATINIB [Suspect]
     Dosage: 1250MG PER DAY
     Route: 048
     Dates: start: 20090508
  2. DOCETAXEL [Suspect]
     Dosage: 138.7MG EVERY 3 WEEKS
     Route: 042
     Dates: start: 20090508
  3. RADIOTHERAPY [Concomitant]
     Dates: end: 20080708
  4. CHEMOTHERAPY [Concomitant]
     Dates: end: 20090506

REACTIONS (1)
  - UTERINE HAEMORRHAGE [None]
